FAERS Safety Report 24709857 (Version 1)
Quarter: 2024Q4

REPORT INFORMATION
  Report Type: Spontaneous
  Country: IT (occurrence: IT)
  Receive Date: 20241209
  Receipt Date: 20241209
  Transmission Date: 20250115
  Serious: Yes (Death, Hospitalization, Other)
  Sender: AMGEN
  Company Number: IT-KYOWAKIRIN-2024KK027025

PATIENT
  Age: 51 Year
  Sex: Male

DRUGS (6)
  1. EPOETIN ALFA [Suspect]
     Active Substance: ERYTHROPOIETIN
     Indication: Pancreatic neuroendocrine tumour
     Dosage: UNK
     Route: 065
  2. BELZUTIFAN [Suspect]
     Active Substance: BELZUTIFAN
     Indication: Pancreatic neuroendocrine tumour
     Dosage: 120 MILLIGRAM, QD
     Route: 048
     Dates: start: 20211108, end: 20211206
  3. BELZUTIFAN [Suspect]
     Active Substance: BELZUTIFAN
     Dosage: 120 MILLIGRAM,QD
     Route: 048
     Dates: start: 20211207, end: 20211219
  4. PANCRELIPASE [Concomitant]
     Active Substance: PANCRELIPASE
     Indication: Product used for unknown indication
     Dosage: 1000 INTERNATIONAL UNIT
     Dates: start: 201212, end: 20220203
  5. Aspirin cox [Concomitant]
     Indication: Product used for unknown indication
     Dosage: 100 MILLIGRAM
     Dates: start: 20130131, end: 20220203
  6. FUROSEMIDE\SPIRONOLACTONE [Concomitant]
     Active Substance: FUROSEMIDE\SPIRONOLACTONE
     Indication: Product used for unknown indication
     Dosage: 70 MILLIGRAM
     Dates: start: 202001, end: 20220203

REACTIONS (2)
  - Malignant neoplasm progression [Fatal]
  - Anaemia [Not Recovered/Not Resolved]

NARRATIVE: CASE EVENT DATE: 20211206
